FAERS Safety Report 6644166-1 (Version None)
Quarter: 2010Q1

REPORT INFORMATION
  Report Type: 
  Country: None (occurrence: None)
  Receive Date: 20100322
  Receipt Date: 20100317
  Transmission Date: 20100710
  Serious: Yes (Death, Other)
  Sender: FDA-Public Use
  Company Number: PHEH2010US03093

PATIENT
  Sex: Female
  Weight: 64.989 kg

DRUGS (14)
  1. TEKTURNA [Suspect]
     Indication: HYPERTENSION
     Dosage: 150 MG, QD
     Route: 048
     Dates: start: 20080910, end: 20081008
  2. TEKTURNA [Suspect]
     Indication: CARDIAC FAILURE
  3. INSULIN [Concomitant]
     Dosage: UNK, UNK
     Route: 065
  4. CLONIDINE [Concomitant]
     Dosage: 0.2 MG, BID
     Route: 065
  5. HYDRALAZINE HCL [Concomitant]
     Dosage: 75 MG, TID
     Route: 065
  6. MINOXIDIL [Concomitant]
     Dosage: UNK, UNK
     Route: 065
  7. VYTORIN [Concomitant]
  8. LANTUS [Concomitant]
  9. PREVACID [Concomitant]
  10. IMDUR [Concomitant]
  11. POTASSIUM [Concomitant]
  12. NORVASC [Concomitant]
     Dosage: 10 MG PER DAY
  13. TESSALON [Concomitant]
  14. LASIX [Concomitant]
     Dosage: 40 MG, PER DAY

REACTIONS (2)
  - ARRHYTHMIA [None]
  - BLOOD CREATININE INCREASED [None]
